FAERS Safety Report 13693433 (Version 2)
Quarter: 2017Q3

REPORT INFORMATION
  Report Type: Spontaneous
  Country: JP (occurrence: JP)
  Receive Date: 20170627
  Receipt Date: 20170802
  Transmission Date: 20171127
  Serious: Yes (Hospitalization, Other)
  Sender: FDA-Public Use
  Company Number: JP-ELI_LILLY_AND_COMPANY-JP201706008792

PATIENT
  Age: 75 Year

DRUGS (3)
  1. PANVITAN                           /05664301/ [Concomitant]
     Indication: NON-SMALL CELL LUNG CANCER
  2. ALIMTA [Suspect]
     Active Substance: PEMETREXED DISODIUM
     Indication: NON-SMALL CELL LUNG CANCER
     Route: 041
  3. FRESMIN S                          /00091801/ [Concomitant]
     Indication: NON-SMALL CELL LUNG CANCER

REACTIONS (2)
  - Gastrointestinal necrosis [Recovered/Resolved]
  - Appendicitis [Unknown]
